FAERS Safety Report 22351677 (Version 1)
Quarter: 2023Q2

REPORT INFORMATION
  Report Type: Spontaneous
  Country: US (occurrence: None)
  Receive Date: 20230522
  Receipt Date: 20230522
  Transmission Date: 20230722
  Serious: Yes (Hospitalization)
  Sender: FDA-Public Use
  Company Number: None

PATIENT

DRUGS (3)
  1. PERSERIS [Suspect]
     Active Substance: RISPERIDONE
     Route: 058
  2. LINEZOLID [Suspect]
     Active Substance: LINEZOLID
  3. RISPERIDONE [Suspect]
     Active Substance: RISPERIDONE

REACTIONS (6)
  - Infection [None]
  - Dehydration [None]
  - Acute kidney injury [None]
  - Product prescribing error [None]
  - Transcription medication error [None]
  - Product administration error [None]
